FAERS Safety Report 25365960 (Version 1)
Quarter: 2025Q2

REPORT INFORMATION
  Report Type: Report from Study
  Country: US (occurrence: US)
  Receive Date: 20250528
  Receipt Date: 20250528
  Transmission Date: 20250717
  Serious: Yes (Death)
  Sender: ACADIA PHARMACEUTICALS
  Company Number: US-ACADIA PHARMACEUTICALS INC.-ACA-2025-PIM-006195

PATIENT
  Sex: Male

DRUGS (11)
  1. NUPLAZID [Suspect]
     Active Substance: PIMAVANSERIN TARTRATE
     Indication: Parkinson^s disease
     Dosage: 34 MILLIGRAM, QD
     Route: 048
     Dates: start: 20231211, end: 20250521
  2. AMANTADINE [Concomitant]
     Active Substance: AMANTADINE
  3. MULTIVIT [VITAMINS NOS] [Concomitant]
  4. VITAMIN C [Concomitant]
     Active Substance: ASCORBIC ACID
  5. ASPIRIN [Concomitant]
     Active Substance: ASPIRIN
  6. VITAMIN B12 [Concomitant]
     Active Substance: CYANOCOBALAMIN
  7. CHOLECALCIFEROL [Concomitant]
     Active Substance: CHOLECALCIFEROL
  8. MONTELUKAST [Concomitant]
     Active Substance: MONTELUKAST
  9. TAMSULOSIN [Concomitant]
     Active Substance: TAMSULOSIN
  10. MEMANTINE [Concomitant]
     Active Substance: MEMANTINE
  11. FINASTERIDE [Concomitant]
     Active Substance: FINASTERIDE

REACTIONS (1)
  - COVID-19 [Fatal]
